FAERS Safety Report 24534892 (Version 3)
Quarter: 2025Q2

REPORT INFORMATION
  Report Type: Report from Study
  Country: BR (occurrence: BR)
  Receive Date: 20241022
  Receipt Date: 20250630
  Transmission Date: 20250716
  Serious: Yes (Hospitalization, Other)
  Sender: TAKEDA
  Company Number: BR-TAKEDA-2021TUS017257

PATIENT
  Age: 50 Year
  Sex: Female

DRUGS (5)
  1. VEDOLIZUMAB [Suspect]
     Active Substance: VEDOLIZUMAB
     Indication: Colitis ulcerative
  2. VEDOLIZUMAB [Suspect]
     Active Substance: VEDOLIZUMAB
  3. LEVOTHYROXINE [Concomitant]
     Active Substance: LEVOTHYROXINE
     Indication: Thyroid disorder
  4. VALSARTAN [Concomitant]
     Active Substance: VALSARTAN
     Indication: Hypertension
  5. VITAMIN D [Concomitant]
     Active Substance: VITAMIN D NOS

REACTIONS (19)
  - Nephrolithiasis [Recovering/Resolving]
  - Urinary tract infection [Recovering/Resolving]
  - Rectal haemorrhage [Unknown]
  - Decreased immune responsiveness [Unknown]
  - White blood cell count abnormal [Recovering/Resolving]
  - Depression [Unknown]
  - Memory impairment [Unknown]
  - Diarrhoea [Unknown]
  - Product availability issue [Unknown]
  - Pain [Unknown]
  - Inappropriate schedule of product administration [Unknown]
  - Insurance issue [Unknown]
  - Gastrointestinal pain [Unknown]
  - Malaise [Unknown]
  - Asthenia [Recovered/Resolved]
  - Dizziness [Recovered/Resolved]
  - Muscle spasms [Unknown]
  - Back pain [Unknown]
  - Arthralgia [Unknown]

NARRATIVE: CASE EVENT DATE: 20210216
